FAERS Safety Report 5944329-4 (Version None)
Quarter: 2008Q4

REPORT INFORMATION
  Report Type: 
  Country: None (occurrence: None)
  Receive Date: 20081105
  Receipt Date: 20081030
  Transmission Date: 20090506
  Serious: Yes (Disabling)
  Sender: FDA-Public Use
  Company Number: APP200800437

PATIENT
  Age: 61 Year
  Sex: Male
  Weight: 91.6266 kg

DRUGS (10)
  1. MARCAINE [Suspect]
     Indication: INFILTRATION ANAESTHESIA
     Dosage: 400 ML, 0.5% CONTINUOUS VIA PAIN PUMP; 0.5%
     Dates: start: 20060509
  2. MARCAINE [Suspect]
     Indication: MUSCULOSKELETAL PAIN
     Dosage: 400 ML, 0.5% CONTINUOUS VIA PAIN PUMP; 0.5%
     Dates: start: 20060509
  3. MARCAINE [Suspect]
     Indication: INFILTRATION ANAESTHESIA
     Dosage: 400 ML, 0.5% CONTINUOUS VIA PAIN PUMP; 0.5%
     Dates: start: 20060509
  4. MARCAINE [Suspect]
     Indication: MUSCULOSKELETAL PAIN
     Dosage: 400 ML, 0.5% CONTINUOUS VIA PAIN PUMP; 0.5%
     Dates: start: 20060509
  5. I-FLOW ON-Q PAINBUSTER PUMP [Suspect]
     Indication: MUSCULOSKELETAL PAIN
     Dates: start: 20060509
  6. POTASSIUM (POTASSIUM) [Concomitant]
  7. MAGNESIUM (MAGNESIUM) [Concomitant]
  8. IMODIUM [Concomitant]
  9. ANCEF [Concomitant]
  10. LACTATED RINGERS (FLEBOBAG RING LACT) [Concomitant]

REACTIONS (2)
  - CHONDROLYSIS [None]
  - MUSCULOSKELETAL PAIN [None]
